FAERS Safety Report 7288730-8 (Version None)
Quarter: 2011Q1

REPORT INFORMATION
  Report Type: 
  Country: None (occurrence: None)
  Receive Date: 20110211
  Receipt Date: 20110204
  Transmission Date: 20110831
  Serious: Yes (Hospitalization, Other)
  Sender: FDA-Public Use
  Company Number: PHHO2011AU01258

PATIENT
  Sex: Female

DRUGS (4)
  1. METOPROLOL [Concomitant]
  2. EVEROLIMUS [Suspect]
     Indication: ACUTE MYELOID LEUKAEMIA
     Dosage: 10 MG, QD
     Route: 048
     Dates: start: 20101217, end: 20110117
  3. AZACITIDINE [Suspect]
     Indication: ACUTE MYELOID LEUKAEMIA
     Dosage: UNK
     Dates: start: 20101213
  4. VALTREX [Concomitant]

REACTIONS (4)
  - PYREXIA [None]
  - LEUKOCYTOCLASTIC VASCULITIS [None]
  - ACUTE FEBRILE NEUTROPHILIC DERMATOSIS [None]
  - SKIN LESION [None]
